FAERS Safety Report 8883319 (Version 1)
Quarter: 2012Q4

REPORT INFORMATION
  Report Type: 
  Country: US (occurrence: US)
  Receive Date: 20121102
  Receipt Date: 20121102
  Transmission Date: 20130627
  Serious: Yes (Other)
  Sender: FDA-Public Use
  Company Number: US-TEVA-367280USA

PATIENT
  Age: 61 Year
  Sex: Female

DRUGS (1)
  1. COPAXONE [Suspect]
     Indication: MULTIPLE SCLEROSIS
     Dates: start: 20030108

REACTIONS (4)
  - Carbon dioxide increased [Recovered/Resolved]
  - Dyspnoea [Recovered/Resolved]
  - Cholecystectomy [Not Recovered/Not Resolved]
  - Nephrolithiasis [Unknown]
